FAERS Safety Report 7248801-9 (Version None)
Quarter: 2011Q1

REPORT INFORMATION
  Report Type: 
  Country: None (occurrence: None)
  Receive Date: 20110112
  Receipt Date: 20110107
  Transmission Date: 20110831
  Serious: Yes (Other)
  Sender: FDA-Public Use
  Company Number: 2011027306

PATIENT
  Age: 19 Year
  Sex: Female

DRUGS (2)
  1. RHOPHYLAC [Suspect]
     Indication: PROPHYLAXIS AGAINST RH ISOIMMUNISATION
     Dosage: 300 UG QD,, INTRAMUSCULAR
     Route: 030
     Dates: start: 20100913, end: 20100913
  2. ANAESTHETICS [Concomitant]

REACTIONS (2)
  - TRANSMISSION OF AN INFECTIOUS AGENT VIA A MEDICINAL PRODUCT [None]
  - CYTOMEGALOVIRUS INFECTION [None]
